FAERS Safety Report 8983736 (Version 6)
Quarter: 2015Q2

REPORT INFORMATION
  Report Type: Report from Study
  Country: SE (occurrence: SE)
  Receive Date: 20121224
  Receipt Date: 20150509
  Transmission Date: 20150821
  Serious: Yes (Hospitalization)
  Sender: FDA-Public Use
  Company Number: SE-ROCHE-1136052

PATIENT
  Age: 80 Year
  Sex: Male
  Weight: 82.3 kg

DRUGS (16)
  1. ACETYLSALICYLSYRA [Concomitant]
     Route: 065
     Dates: start: 1988, end: 20150105
  2. FUROSEMIDE. [Concomitant]
     Active Substance: FUROSEMIDE
     Route: 065
     Dates: start: 20121120, end: 20121120
  3. FUROSEMIDE. [Concomitant]
     Active Substance: FUROSEMIDE
     Route: 065
     Dates: start: 20120915
  4. VEMURAFENIB [Suspect]
     Active Substance: VEMURAFENIB
     Indication: MALIGNANT MELANOMA
     Dosage: DATE OF LAST DOSE PRIOR TO SAE (HEART FAILURE): 19/NOV/2012?DATE OF LAST DOSE PRIOR TO SAE (SUPRAVEN
     Route: 048
     Dates: start: 20110928, end: 20111120
  5. METFORMIN [Concomitant]
     Active Substance: METFORMIN HYDROCHLORIDE
     Route: 065
     Dates: start: 20120412
  6. DIKLOFENAK [Concomitant]
     Active Substance: DICLOFENAC SODIUM
     Dosage: AS REQUIRED
     Route: 065
     Dates: start: 20120703, end: 20150109
  7. FELODIPIN [Concomitant]
     Active Substance: FELODIPINE
     Route: 065
     Dates: start: 20120917, end: 20141124
  8. FUROSEMIDE. [Concomitant]
     Active Substance: FUROSEMIDE
     Route: 042
     Dates: start: 20121121, end: 20121121
  9. ACETYLCYSTEINE. [Concomitant]
     Active Substance: ACETYLCYSTEINE
     Dosage: AS REQUIRED
     Route: 065
     Dates: start: 20111205
  10. VEMURAFENIB [Suspect]
     Active Substance: VEMURAFENIB
     Route: 048
     Dates: start: 20121206
  11. DICLOFENAC [Concomitant]
     Active Substance: DICLOFENAC
     Route: 065
     Dates: start: 20120703
  12. ATENOLOL. [Concomitant]
     Active Substance: ATENOLOL
     Route: 065
     Dates: start: 1981
  13. BENDROFLUAZIDE [Concomitant]
     Active Substance: BENDROFLUMETHIAZIDE
     Route: 065
     Dates: start: 1981
  14. ACETYLCYSTEINE. [Concomitant]
     Active Substance: ACETYLCYSTEINE
     Route: 065
     Dates: start: 20121023
  15. FELODIPIN [Concomitant]
     Active Substance: FELODIPINE
     Route: 065
     Dates: start: 1981
  16. COCILLANA-ETYFIN [Concomitant]
     Active Substance: ETHYLMORPHINE HYDROCHLORIDE\HERBALS
     Route: 065
     Dates: start: 20111205

REACTIONS (3)
  - Cholecystitis [Recovered/Resolved]
  - Cardiac failure [Recovered/Resolved]
  - Supraventricular tachycardia [Recovered/Resolved]

NARRATIVE: CASE EVENT DATE: 20120910
